FAERS Safety Report 13619759 (Version 1)
Quarter: 2017Q2

REPORT INFORMATION
  Report Type: Spontaneous
  Country: US (occurrence: US)
  Receive Date: 20170607
  Receipt Date: 20170607
  Transmission Date: 20170830
  Serious: Yes (Hospitalization, Other)
  Sender: FDA-Public Use
  Company Number: US-TEVA-775086USA

PATIENT
  Age: 15 Month
  Sex: Female

DRUGS (5)
  1. ASPIRIN. [Suspect]
     Active Substance: ASPIRIN
     Indication: ANTIPLATELET THERAPY
     Dosage: HIGH-DOSE
     Route: 065
  2. VANCOMYCIN [Suspect]
     Active Substance: VANCOMYCIN
     Indication: THYMUS ABSCESS
     Dosage: THROUGH A PERIPHERALLY INSERTED CENTRAL CATHETER
     Route: 065
  3. CEFTRIAXONE. [Suspect]
     Active Substance: CEFTRIAXONE
     Indication: THYMUS ABSCESS
     Dosage: THROUGH A PERIPHERALLY INSERTED CENTRAL CATHETER
     Route: 042
  4. LINEZOLID. [Suspect]
     Active Substance: LINEZOLID
     Indication: THYMUS ABSCESS
     Route: 048
  5. IMMUNE GLOBULIN INTRAVENOUS (HUMAN) [Concomitant]
     Active Substance: HUMAN IMMUNOGLOBULIN G
     Dosage: 2 G/KG
     Route: 042

REACTIONS (3)
  - Pericardial effusion [Recovered/Resolved]
  - Bone marrow failure [Recovering/Resolving]
  - Haemorrhage [Recovered/Resolved]
